FAERS Safety Report 13254815 (Version 2)
Quarter: 2017Q2

REPORT INFORMATION
  Report Type: Spontaneous
  Country: US (occurrence: US)
  Receive Date: 20170221
  Receipt Date: 20170405
  Transmission Date: 20170830
  Serious: No
  Sender: FDA-Public Use
  Company Number: US-PFIZER INC-2016392335

PATIENT
  Age: 72 Year
  Sex: Female

DRUGS (16)
  1. PRIMIDONE. [Concomitant]
     Active Substance: PRIMIDONE
     Indication: HYPERTENSION
     Dosage: 75 MG, 1X/DAY (1 1/2 (ONE AND A HALF) TABLET AT BEDTIME)
     Dates: start: 20161114
  2. SEROQUEL [Concomitant]
     Active Substance: QUETIAPINE FUMARATE
     Indication: HEADACHE
     Dosage: 25 MG, AS NEEDED [EVERY EIGHT HOURS, AS NEEDED]
     Dates: start: 20161021
  3. VALIUM [Concomitant]
     Active Substance: DIAZEPAM
     Dosage: 10 MG, AS NEEDED
     Route: 048
  4. DULOXETINE HCL [Concomitant]
     Active Substance: DULOXETINE HYDROCHLORIDE
     Dosage: 60 MG, DAILY
     Route: 048
  5. RELPAX [Suspect]
     Active Substance: ELETRIPTAN HYDROBROMIDE
     Indication: HEADACHE
     Dosage: 40 MG, AS NEEDED [ONE UPON ONSET OF HEADACHE, MAY REPEAT IN TWO HOURS PRN]
     Route: 048
     Dates: start: 20161101
  6. VERAPAMIL HCL [Concomitant]
     Active Substance: VERAPAMIL HYDROCHLORIDE
     Indication: HYPERTENSION
     Dosage: 180 MG, 1X/DAY  [AT BEDTIME]
     Dates: start: 20160808
  7. AMERGE [Concomitant]
     Active Substance: NARATRIPTAN HYDROCHLORIDE
     Indication: MIGRAINE WITHOUT AURA
     Dosage: 2.5 MG, AS NEEDED (TWO TIMES DAILY, AS NEEDED)
     Dates: start: 20160701
  8. LOSARTAN POTASSIUM. [Concomitant]
     Active Substance: LOSARTAN POTASSIUM
     Dosage: 50 MG, DAILY
     Route: 048
  9. CLONAZEPAM. [Concomitant]
     Active Substance: CLONAZEPAM
     Dosage: 0.5 MG, AS NEEDED [1 ORAL THREE TIMES DAILY, AS NEEDED]
     Route: 048
  10. RELPAX [Suspect]
     Active Substance: ELETRIPTAN HYDROBROMIDE
     Indication: MIGRAINE WITHOUT AURA
     Dosage: 40 MG, AS NEEDED [ONE UPON ONSET OF HEADACHE, MAY REPEAT IN TWO HOURS PRN]
     Route: 048
     Dates: start: 20160728
  11. LAMOTRIGINE. [Concomitant]
     Active Substance: LAMOTRIGINE
     Dosage: 100 MG, DAILY
     Route: 048
  12. CLONAZEPAM. [Concomitant]
     Active Substance: CLONAZEPAM
     Dosage: 1 MG, AS NEEDED [1 ORAL THREE TIMES DAILY, AS NEDDED]
     Route: 048
  13. GABAPENTIN. [Concomitant]
     Active Substance: GABAPENTIN
     Dosage: 300 MG, DAILY
     Route: 048
  14. RELPAX [Suspect]
     Active Substance: ELETRIPTAN HYDROBROMIDE
     Indication: MIGRAINE
  15. TIZANIDINE HCL [Concomitant]
     Active Substance: TIZANIDINE HYDROCHLORIDE
     Indication: CERVICOGENIC HEADACHE
     Dosage: 1.5 DF, AS NEEDED [1.5 TABLET FOUR TIMES DAILY, AS NEEDED]
     Dates: start: 20160927
  16. ESTRADIOL. [Concomitant]
     Active Substance: ESTRADIOL
     Dosage: 2 MG, DAILY
     Route: 048

REACTIONS (1)
  - Nausea [Unknown]
